FAERS Safety Report 10219002 (Version 2)
Quarter: 2014Q2

REPORT INFORMATION
  Report Type: Spontaneous
  Country: SE (occurrence: None)
  Receive Date: 20140603
  Receipt Date: 20140606
  Transmission Date: 20141212
  Serious: Yes (Hospitalization, Disabling)
  Sender: FDA-Public Use
  Company Number: E2B_7294933

PATIENT
  Age: 22 Year
  Sex: Female
  Weight: 98 kg

DRUGS (7)
  1. EUTHYROX [Suspect]
     Indication: GOITRE
     Route: 048
     Dates: start: 201111, end: 2012
  2. EUTHYROX [Suspect]
     Indication: THYROIDECTOMY
     Route: 048
     Dates: start: 201111, end: 2012
  3. LEVAXIN [Suspect]
     Indication: GOITRE
     Route: 048
     Dates: start: 1991, end: 201111
  4. LEVAXIN [Suspect]
     Indication: THYROIDECTOMY
     Route: 048
     Dates: start: 1991, end: 201111
  5. BEHEPAN [Concomitant]
  6. IRON (IRON) (IRON) [Concomitant]
  7. CALCIUM (CALCIUM) (CALCIUM) [Concomitant]

REACTIONS (13)
  - Dyspnoea [None]
  - Pain [None]
  - Dizziness [None]
  - Stress [None]
  - Blood pressure decreased [None]
  - Throat tightness [None]
  - Asthenia [None]
  - Anxiety [None]
  - Tremor [None]
  - Bedridden [None]
  - Fall [None]
  - Hypotension [None]
  - Dizziness [None]
